FAERS Safety Report 23560858 (Version 1)
Quarter: 2024Q1

REPORT INFORMATION
  Report Type: Spontaneous
  Country: FR (occurrence: FR)
  Receive Date: 20240223
  Receipt Date: 20240223
  Transmission Date: 20240410
  Serious: Yes (Other)
  Sender: FDA-Public Use
  Company Number: None

PATIENT
  Age: 46 Year
  Sex: Female
  Weight: 63 kg

DRUGS (8)
  1. KEYTRUDA [Suspect]
     Active Substance: PEMBROLIZUMAB
     Indication: Breast cancer
     Dosage: 25 MG/ML, 200 MG
     Route: 042
     Dates: start: 20230913, end: 20230913
  2. ONDANSETRON [Concomitant]
     Active Substance: ONDANSETRON
     Indication: Chemotherapy side effect prophylaxis
     Dosage: 8 MG MORNING AND EVENING ON EACH DAY 1   , CYCLICAL
     Route: 048
     Dates: start: 20230913
  3. PACLITAXEL [Concomitant]
     Active Substance: PACLITAXEL
     Indication: Breast cancer
     Dosage: 6 MG/ML, 126 MILLIGRAM, CYCLICAL
     Route: 042
     Dates: start: 20230920, end: 20230920
  4. ACETAMINOPHEN [Concomitant]
     Active Substance: ACETAMINOPHEN
     Indication: Headache
     Dosage: 2 GRAM, QD
     Route: 048
     Dates: start: 20231019, end: 20231020
  5. DEXAMETHASONE [Concomitant]
     Active Substance: DEXAMETHASONE
     Indication: Chemotherapy side effect prophylaxis
     Dosage: 8 MILLIGRAM, CYCLICAL
     Route: 042
     Dates: start: 20230913
  6. CARBOPLATIN [Concomitant]
     Active Substance: CARBOPLATIN
     Indication: Breast cancer
     Dosage: 680 MILLIGRAM, CYCLICAL C4J1 AUC 5
     Route: 042
     Dates: start: 20231115, end: 20231115
  7. POLARAMINE [Concomitant]
     Active Substance: DEXCHLORPHENIRAMINE MALEATE
     Indication: Chemotherapy side effect prophylaxis
     Dosage: 5 MG/1 ML,, 5 MILLIGRAM, CYCLICAL
     Route: 042
     Dates: start: 20230913
  8. APREPITANT [Concomitant]
     Active Substance: APREPITANT
     Indication: Chemotherapy side effect prophylaxis
     Dosage: D1 125 MG D2D3 80 MG FOR D1 OF EACH CYCLE
     Route: 048
     Dates: start: 20230913

REACTIONS (2)
  - Hypertransaminasaemia [Recovered/Resolved]
  - Hypertransaminasaemia [Recovered/Resolved]

NARRATIVE: CASE EVENT DATE: 20230925
